FAERS Safety Report 12943750 (Version 1)
Quarter: 2016Q4

REPORT INFORMATION
  Report Type: Spontaneous
  Country: US (occurrence: US)
  Receive Date: 20161115
  Receipt Date: 20161115
  Transmission Date: 20170207
  Serious: No
  Sender: FDA-Public Use
  Company Number: US-ROCHE-1731748

PATIENT
  Age: 80 Year
  Sex: Male

DRUGS (1)
  1. TAMIFLU [Suspect]
     Active Substance: OSELTAMIVIR PHOSPHATE
     Indication: PRODUCT USED FOR UNKNOWN INDICATION
     Dosage: 1 CAPSULE TWICE DAILY
     Route: 048

REACTIONS (6)
  - Rash generalised [Unknown]
  - Pyrexia [Unknown]
  - Rash [Unknown]
  - Fungal infection [Unknown]
  - Blood urine present [Unknown]
  - Dizziness [Unknown]

NARRATIVE: CASE EVENT DATE: 20160324
